FAERS Safety Report 9412924 (Version 5)
Quarter: 2014Q2

REPORT INFORMATION
  Report Type: Report from Study
  Country: BR (occurrence: BR)
  Receive Date: 20130722
  Receipt Date: 20140424
  Transmission Date: 20141212
  Serious: Yes (Hospitalization)
  Sender: FDA-Public Use
  Company Number: BR-ROCHE-1173251

PATIENT
  Age: 73 Year
  Sex: Male
  Weight: 38 kg

DRUGS (16)
  1. ACTEMRA [Suspect]
     Indication: RHEUMATOID ARTHRITIS
     Dosage: INJECTABLE.LAST DOSE PRIOR TO SAE: 23/MAY/2013.
     Route: 042
     Dates: start: 20110706, end: 201305
  2. OSTEONUTRI [Concomitant]
     Route: 065
  3. FOLIC ACID [Concomitant]
     Route: 065
  4. VASOGARD [Concomitant]
     Route: 065
  5. ACETYLSALICYLIC ACID [Concomitant]
     Route: 065
  6. PREDNISONE [Concomitant]
     Route: 065
  7. ACULAR [Concomitant]
  8. CEWIN [Concomitant]
  9. OMEPRAZOLE [Concomitant]
  10. SERTRALINE [Concomitant]
  11. NORVASC [Concomitant]
     Route: 065
  12. RENITEC [Concomitant]
     Route: 065
  13. HIDANTAL [Concomitant]
  14. COUMADIN [Concomitant]
  15. B COMPLEX [Concomitant]
  16. METHOTREXATE [Concomitant]
     Route: 065

REACTIONS (17)
  - Pulmonary embolism [Recovering/Resolving]
  - Malaise [Unknown]
  - Bronchopneumonia [Recovered/Resolved]
  - Blood pressure increased [Unknown]
  - Cerebrovascular accident [Recovered/Resolved with Sequelae]
  - Pneumonia [Recovering/Resolving]
  - Respiratory disorder [Not Recovered/Not Resolved]
  - Cerebrovascular accident [Recovered/Resolved]
  - Peripheral swelling [Recovered/Resolved]
  - Injury [Recovered/Resolved]
  - Kyphosis [Not Recovered/Not Resolved]
  - Body height decreased [Unknown]
  - Gait disturbance [Not Recovered/Not Resolved]
  - Asthenia [Not Recovered/Not Resolved]
  - Helminthic infection [Recovered/Resolved]
  - Pain in extremity [Unknown]
  - Asthenia [Not Recovered/Not Resolved]
